FAERS Safety Report 18740856 (Version 1)
Quarter: 2021Q1

REPORT INFORMATION
  Report Type: Report from Study
  Country: IN (occurrence: IN)
  Receive Date: 20210114
  Receipt Date: 20210114
  Transmission Date: 20210419
  Serious: Yes (Death, Other)
  Sender: FDA-Public Use
  Company Number: NVSC2021IN007261

PATIENT
  Age: 52 Year
  Sex: Female

DRUGS (1)
  1. VYMADA [Suspect]
     Active Substance: SACUBITRIL\VALSARTAN
     Indication: CARDIAC FAILURE
     Dosage: UNK, UNKNOWN
     Route: 048
     Dates: start: 2019

REACTIONS (4)
  - Death [Fatal]
  - Blood pressure fluctuation [Unknown]
  - Post procedural complication [Unknown]
  - Renal disorder [Unknown]

NARRATIVE: CASE EVENT DATE: 20201216
